FAERS Safety Report 4740577-X (Version None)
Quarter: 2005Q3

REPORT INFORMATION
  Report Type: 
  Country: None (occurrence: None)
  Receive Date: 20050729
  Receipt Date: 20041027
  Transmission Date: 20060218
  Serious: Yes (Other)
  Sender: FDA-Public Use
  Company Number: US-2004-034221

PATIENT
  Age: 60 Year
  Sex: Female

DRUGS (2)
  1. MAGNEVIST [Suspect]
     Indication: NUCLEAR MAGNETIC RESONANCE IMAGING BRAIN
     Dosage: 19 ML, 1 DOSE, INTRAVENOUS
     Route: 040
     Dates: start: 20041027, end: 20041027
  2. MAGNEVIST [Suspect]
     Dosage: INTRAVENOUS
     Route: 042
     Dates: start: 20041027, end: 20041027

REACTIONS (5)
  - BURNING SENSATION [None]
  - CHEST PAIN [None]
  - DYSPNOEA [None]
  - HYPERHIDROSIS [None]
  - RASH [None]
